FAERS Safety Report 9006829 (Version 3)
Quarter: 2013Q1

REPORT INFORMATION
  Report Type: Spontaneous
  Country: JP (occurrence: JP)
  Receive Date: 20130110
  Receipt Date: 20130201
  Transmission Date: 20140127
  Serious: Yes (Hospitalization, Other)
  Sender: FDA-Public Use
  Company Number: JP-PFIZER INC-2013009557

PATIENT
  Age: 68 Year
  Sex: Male

DRUGS (10)
  1. HALCION [Suspect]
     Dosage: 0.125 MG, 1X/DAY
     Route: 048
  2. ANCARON [Concomitant]
     Dosage: 100 MG, DAILY
     Route: 048
  3. GLUFAST [Concomitant]
     Dosage: 20 MG, DAILY
     Route: 048
  4. WARFARIN [Concomitant]
     Dosage: 2 MG, DAILY
     Route: 048
  5. PLETAAL [Concomitant]
     Dosage: 100 MG, DAILY
  6. BAYASPIRIN [Concomitant]
     Dosage: 100 MG, DAILY
  7. CALCITRIOL [Concomitant]
     Dosage: 0.25 MG, DAILY
  8. PROTECADIN [Concomitant]
     Dosage: 10 MG, DAILY
  9. YODEL S [Concomitant]
  10. LAXOBERON [Concomitant]

REACTIONS (1)
  - Loss of consciousness [Recovered/Resolved]
